FAERS Safety Report 11507336 (Version 1)
Quarter: 2015Q3

REPORT INFORMATION
  Report Type: Spontaneous
  Country: US (occurrence: None)
  Receive Date: 20150914
  Receipt Date: 20150914
  Transmission Date: 20151125
  Serious: Yes (Other)
  Sender: FDA-Public Use
  Company Number: None

PATIENT
  Age: 61 Year
  Sex: Female
  Weight: 65.77 kg

DRUGS (6)
  1. NIASPAN [Suspect]
     Active Substance: NIACIN
     Indication: BLOOD CHOLESTEROL INCREASED
     Dosage: 1
     Route: 048
  2. VITAMIN D3 [Concomitant]
     Active Substance: CHOLECALCIFEROL
  3. LAMICTAL-WEAN [Concomitant]
  4. CALTRATE [Concomitant]
     Active Substance: CALCIUM CARBONATE
  5. BRINTELLIX [Concomitant]
     Active Substance: VORTIOXETINE HYDROBROMIDE
  6. LORAZEPAM. [Concomitant]
     Active Substance: LORAZEPAM

REACTIONS (10)
  - Urticaria [None]
  - Weight increased [None]
  - Tremor [None]
  - Flushing [None]
  - Blood triglycerides increased [None]
  - Herpes zoster [None]
  - Drug withdrawal syndrome [None]
  - Insomnia [None]
  - Toxicity to various agents [None]
  - Nervousness [None]

NARRATIVE: CASE EVENT DATE: 20150901
